FAERS Safety Report 21077579 (Version 1)
Quarter: 2022Q3

REPORT INFORMATION
  Report Type: Spontaneous
  Country: US (occurrence: None)
  Receive Date: 20220713
  Receipt Date: 20220713
  Transmission Date: 20221027
  Serious: Yes (Other)
  Sender: FDA-Public Use
  Company Number: None

PATIENT
  Age: 75 Year
  Sex: Female
  Weight: 77.11 kg

DRUGS (9)
  1. LANTUS [Suspect]
     Active Substance: INSULIN GLARGINE
     Indication: Diabetes mellitus
     Dosage: FREQUENCY : TWICE A DAY;?
     Route: 058
     Dates: start: 2021, end: 20210512
  2. HUMALOG [Suspect]
     Active Substance: INSULIN LISPRO
  3. TRULICITY [Suspect]
     Active Substance: DULAGLUTIDE
  4. INSULIN LISPRO [Suspect]
     Active Substance: INSULIN LISPRO
  5. METFORMIN [Suspect]
     Active Substance: METFORMIN HYDROCHLORIDE
  6. LOSARATIN [Concomitant]
  7. LISOOPRIL [Concomitant]
  8. ADALA/NIFEDPRINE [Concomitant]
  9. HYDRALAZINE [Concomitant]
     Active Substance: HYDRALAZINE HYDROCHLORIDE

REACTIONS (14)
  - Muscle atrophy [None]
  - Myalgia [None]
  - Pain in extremity [None]
  - Hypoaesthesia [None]
  - Muscle spasms [None]
  - Gait disturbance [None]
  - Dysstasia [None]
  - Fatigue [None]
  - Bacterial infection [None]
  - Vaginal infection [None]
  - Blood potassium decreased [None]
  - Weight increased [None]
  - Paraesthesia [None]
  - Muscular weakness [None]

NARRATIVE: CASE EVENT DATE: 20211031
